FAERS Safety Report 9658541 (Version 2)
Quarter: 2013Q4

REPORT INFORMATION
  Report Type: Spontaneous
  Country: US (occurrence: US)
  Receive Date: 20131030
  Receipt Date: 20131030
  Transmission Date: 20140711
  Serious: No
  Sender: FDA-Public Use
  Company Number: US-PURDUE-USA-2010-0061909

PATIENT
  Sex: Female

DRUGS (6)
  1. OXYCONTIN (NDA 22-272) [Suspect]
     Indication: BRAIN OPERATION
     Dosage: 40 MG, BID
     Dates: start: 201010
  2. OXYCONTIN (NDA 22-272) [Suspect]
     Indication: PAIN
  3. OXYCODONE HCL IMMEDIATE RELEASE (91-490) [Concomitant]
     Indication: BREAKTHROUGH PAIN
     Dosage: 30 MG, UNK
  4. ROXICODONE [Concomitant]
     Dosage: 30 MG, UNK
  5. XANAX [Concomitant]
     Dosage: 1 MG, UNK
  6. LISINOPRIL [Concomitant]
     Dosage: 5 MG, UNK

REACTIONS (4)
  - Pain [Recovered/Resolved]
  - Back pain [Unknown]
  - Drug effect decreased [Recovered/Resolved]
  - Headache [Unknown]
